FAERS Safety Report 10269431 (Version 2)
Quarter: 2014Q3

REPORT INFORMATION
  Report Type: Report from Study
  Country: VE (occurrence: VE)
  Receive Date: 20140701
  Receipt Date: 20140818
  Transmission Date: 20150326
  Serious: Yes (Hospitalization)
  Sender: FDA-Public Use
  Company Number: VE-BIOGENIDEC-2014BI063261

PATIENT
  Age: 35 Year
  Sex: Female

DRUGS (1)
  1. TYSABRI [Suspect]
     Active Substance: NATALIZUMAB
     Indication: PRODUCT USED FOR UNKNOWN INDICATION
     Route: 042
     Dates: start: 20130529

REACTIONS (4)
  - Multiple sclerosis relapse [Unknown]
  - Dyspnoea [Unknown]
  - Chest pain [Unknown]
  - Ataxia [Unknown]

NARRATIVE: CASE EVENT DATE: 2013
